FAERS Safety Report 4547176-3 (Version None)
Quarter: 2005Q1

REPORT INFORMATION
  Report Type: 
  Country: None (occurrence: None)
  Receive Date: 20050107
  Receipt Date: 20041231
  Transmission Date: 20050727
  Serious: Yes (Hospitalization)
  Sender: FDA-Public Use
  Company Number: 200510018FR

PATIENT
  Age: 70 Year
  Sex: Female

DRUGS (5)
  1. CLAFORAN [Suspect]
     Route: 042
     Dates: start: 20041203
  2. PYOSTACINE [Suspect]
     Route: 048
     Dates: start: 20041119, end: 20041203
  3. TARGOCID [Suspect]
     Route: 042
     Dates: start: 20041113, end: 20041119
  4. FUCIDINE CAP [Suspect]
     Route: 042
     Dates: start: 20041110, end: 20041119
  5. TIENAM [Suspect]
     Dates: start: 20041110, end: 20041120

REACTIONS (1)
  - AGEUSIA [None]
